FAERS Safety Report 5371698-9 (Version None)
Quarter: 2007Q2

REPORT INFORMATION
  Report Type: 
  Country: None (occurrence: None)
  Receive Date: 20070627
  Receipt Date: 20070618
  Transmission Date: 20071010
  Serious: Yes (Other)
  Sender: FDA-Public Use
  Company Number: BR-ASTRAZENECA-2007UW14817

PATIENT
  Age: 61 Year
  Sex: Female
  Weight: 96 kg

DRUGS (3)
  1. SELOZOK [Suspect]
     Route: 048
     Dates: start: 20060101
  2. SIMVASTATIN [Concomitant]
     Indication: HYPERCHOLESTEROLAEMIA
     Route: 048
     Dates: start: 20060101
  3. ASPIRIN [Concomitant]
     Route: 048
     Dates: start: 20060101

REACTIONS (6)
  - ALOPECIA [None]
  - FATIGUE [None]
  - INSOMNIA [None]
  - NIGHTMARE [None]
  - WEIGHT INCREASED [None]
  - WHEEZING [None]
